FAERS Safety Report 6874716-1 (Version None)
Quarter: 2010Q3

REPORT INFORMATION
  Report Type: 
  Country: None (occurrence: None)
  Receive Date: 20100715
  Receipt Date: 20100715
  Transmission Date: 20110219
  Serious: Yes (Hospitalization)
  Sender: FDA-Public Use
  Company Number: 3082010

PATIENT
  Age: 67 Year
  Sex: Female

DRUGS (7)
  1. BETIMOL [Suspect]
     Indication: OPEN ANGLE GLAUCOMA
     Dosage: , BID, OCULAR
     Dates: start: 20100517
  2. STRENGTH: 0.25% OR 0.5%; MFR/LABELER: SANTEN OY [Suspect]
     Indication: OCULAR HYPERTENSION
  3. AMLODIPINE BESYLATE/BENAZEPRIL HYDRO [Concomitant]
  4. CARVEDILOL [Concomitant]
  5. INDAPAMIDE [Concomitant]
  6. NAPROXEN [Concomitant]
  7. WARFARIN SODIUM [Concomitant]

REACTIONS (1)
  - PULMONARY EMBOLISM [None]
